FAERS Safety Report 5328957-5 (Version None)
Quarter: 2007Q2

REPORT INFORMATION
  Report Type: 
  Country: None (occurrence: None)
  Receive Date: 20070518
  Receipt Date: 20070510
  Transmission Date: 20071010
  Serious: Yes (Hospitalization)
  Sender: FDA-Public Use
  Company Number: US-SANOFI-SYNTHELABO-A03200703000

PATIENT
  Age: 65 Year
  Sex: Female
  Weight: 54.4 kg

DRUGS (4)
  1. THORAZINE [Suspect]
     Indication: INSOMNIA
     Dosage: UNK
     Route: 048
     Dates: start: 19940101, end: 20020101
  2. AMBIEN [Interacting]
     Indication: INSOMNIA
     Route: 048
     Dates: start: 20020101, end: 20020101
  3. AMBIEN [Interacting]
     Dosage: UNK
     Route: 048
     Dates: start: 19930101, end: 20020101
  4. SYNTHROID [Concomitant]
     Dosage: UNK
     Route: 048

REACTIONS (8)
  - ACCIDENTAL OVERDOSE [None]
  - AMNESIA [None]
  - CEREBROVASCULAR ACCIDENT [None]
  - DRUG INEFFECTIVE [None]
  - DRUG INTERACTION [None]
  - LOSS OF CONSCIOUSNESS [None]
  - RESTLESS LEGS SYNDROME [None]
  - WEIGHT INCREASED [None]
